FAERS Safety Report 5762660-2 (Version None)
Quarter: 2008Q2

REPORT INFORMATION
  Report Type: 
  Country: None (occurrence: None)
  Receive Date: 20080521
  Receipt Date: 20071016
  Transmission Date: 20081010
  Serious: Yes (Life-Threatening, Hospitalization)
  Sender: FDA-Public Use
  Company Number: 2007-04671

PATIENT
  Age: 79 Year
  Sex: Female
  Weight: 51.7 kg

DRUGS (6)
  1. TAZTIA XT [Suspect]
     Indication: HYPERTENSION
     Dosage: 1 CAPSUL, QHS, ORAL
     Route: 048
     Dates: start: 20061101, end: 20070101
  2. LISINOPRIL [Concomitant]
  3. LIPITOR [Concomitant]
  4. TRICOR [Concomitant]
  5. AVANDAMET [Concomitant]
  6. LANTUS [Concomitant]

REACTIONS (3)
  - BRADYCARDIA [None]
  - DIZZINESS [None]
  - DRUG TOXICITY [None]
